FAERS Safety Report 5224719-8 (Version None)
Quarter: 2007Q1

REPORT INFORMATION
  Report Type: 
  Country: None (occurrence: None)
  Receive Date: 20070131
  Receipt Date: 20070124
  Transmission Date: 20070707
  Serious: Yes (Hospitalization)
  Sender: FDA-Public Use
  Company Number: FRWYE322224JAN07

PATIENT
  Age: 14 Year
  Sex: Male
  Weight: 63 kg

DRUGS (5)
  1. ADVIL [Suspect]
     Indication: ARTHRALGIA
     Dosage: UNKNOWN
     Route: 048
     Dates: start: 20061213
  2. ADVIL [Suspect]
     Indication: PYREXIA
  3. MYOLASTAN [Concomitant]
     Indication: ARTHRALGIA
     Dosage: UNKNOWN
     Dates: start: 20061213
  4. VENTOLIN [Concomitant]
     Indication: ASTHMA EXERCISE INDUCED
     Dosage: AT REQUEST
  5. KETOPROFEN [Suspect]
     Indication: ARTHRALGIA
     Dosage: UNKNOWN
     Route: 061
     Dates: start: 20061213

REACTIONS (6)
  - DRUG INEFFECTIVE [None]
  - INSOMNIA [None]
  - PSOAS ABSCESS [None]
  - SACROILIITIS [None]
  - SEPTIC ARTHRITIS STAPHYLOCOCCAL [None]
  - STAPHYLOCOCCAL ABSCESS [None]
